FAERS Safety Report 11726790 (Version 2)
Quarter: 2015Q4

REPORT INFORMATION
  Report Type: Report from Study
  Country: US (occurrence: US)
  Receive Date: 20151112
  Receipt Date: 20151211
  Transmission Date: 20160304
  Serious: Yes (Other)
  Sender: FDA-Public Use
  Company Number: PHEH2015US023149

PATIENT
  Sex: Female

DRUGS (1)
  1. TOBI PODHALER [Suspect]
     Active Substance: TOBRAMYCIN
     Indication: BRONCHIECTASIS
     Dosage: 4 DF, BID (TOTAL 112 MG FOR 28 DAYS ON AND 28 DAYS OFF)
     Route: 055
     Dates: start: 20151016

REACTIONS (4)
  - Dysgeusia [Not Recovered/Not Resolved]
  - Fungal infection [Recovered/Resolved]
  - Dry mouth [Not Recovered/Not Resolved]
  - Product use issue [Unknown]
